FAERS Safety Report 10243783 (Version 3)
Quarter: 2014Q2

REPORT INFORMATION
  Report Type: Spontaneous
  Country: HU (occurrence: HU)
  Receive Date: 20140618
  Receipt Date: 20140627
  Transmission Date: 20141212
  Serious: Yes (Other)
  Sender: FDA-Public Use
  Company Number: HU-JNJFOC-20140606965

PATIENT
  Age: 15 Year
  Sex: Male

DRUGS (4)
  1. INFLIXIMAB, RECOMBINANT [Suspect]
     Indication: CROHN^S DISEASE
     Route: 042
  2. METHYLPREDNISOLONE [Concomitant]
     Indication: CROHN^S DISEASE
     Route: 065
  3. MESALAZINE [Concomitant]
     Indication: CROHN^S DISEASE
     Route: 065
  4. AZATHIOPRINE [Concomitant]
     Indication: CROHN^S DISEASE
     Route: 065

REACTIONS (1)
  - Drug ineffective [Unknown]
